FAERS Safety Report 7803122-8 (Version None)
Quarter: 2011Q4

REPORT INFORMATION
  Report Type: 
  Country: None (occurrence: None)
  Receive Date: 20111007
  Receipt Date: 20110928
  Transmission Date: 20120403
  Serious: Yes (Other)
  Sender: FDA-Public Use
  Company Number: PHHY2011IN86411

PATIENT

DRUGS (4)
  1. GLEEVEC [Suspect]
     Dosage: 800 MG
     Route: 048
     Dates: start: 20041225
  2. GLEEVEC [Suspect]
     Indication: CHRONIC MYELOID LEUKAEMIA
     Dosage: 400 MG, UNK
     Route: 048
  3. GLEEVEC [Suspect]
     Dosage: 400 MG
     Dates: start: 20030716
  4. GLEEVEC [Suspect]
     Dosage: 600 MG
     Dates: start: 20040116

REACTIONS (2)
  - FATIGUE [None]
  - MYASTHENIA GRAVIS [None]
